FAERS Safety Report 23303228 (Version 1)
Quarter: 2023Q4

REPORT INFORMATION
  Report Type: Spontaneous
  Country: US (occurrence: None)
  Receive Date: 20231215
  Receipt Date: 20231215
  Transmission Date: 20240109
  Serious: Yes (Death, Hospitalization)
  Sender: FDA-Public Use
  Company Number: 2023A285112

PATIENT
  Age: 70 Year
  Sex: Female

DRUGS (8)
  1. ESOMEPRAZOLE [Suspect]
     Active Substance: ESOMEPRAZOLE
  2. AMLODIPINE [Suspect]
     Active Substance: AMLODIPINE BESYLATE
  3. CARVEDILOL [Suspect]
     Active Substance: CARVEDILOL
  4. ALPRAZOLAM [Suspect]
     Active Substance: ALPRAZOLAM
  5. TEMAZEPAM [Suspect]
     Active Substance: TEMAZEPAM
  6. FAMOTIDINE [Suspect]
     Active Substance: FAMOTIDINE
  7. CARAFATE [Suspect]
     Active Substance: SUCRALFATE
  8. BUPRENORPHINE HYDROCHLORIDE [Suspect]
     Active Substance: BUPRENORPHINE HYDROCHLORIDE

REACTIONS (2)
  - Toxicity to various agents [Fatal]
  - Completed suicide [Fatal]
